FAERS Safety Report 5839557-2 (Version None)
Quarter: 2008Q3

REPORT INFORMATION
  Report Type: 
  Country: None (occurrence: None)
  Receive Date: 20080811
  Receipt Date: 20080731
  Transmission Date: 20090109
  Serious: Yes (Hospitalization)
  Sender: FDA-Public Use
  Company Number: NL-TEVA-175321ISR

PATIENT
  Age: 44 Year
  Sex: Female

DRUGS (5)
  1. DICLOFENAC SODIUM [Suspect]
     Indication: HEADACHE
  2. PARACETAMOL [Suspect]
     Indication: HEADACHE
  3. ACETAMINOPHEN W/ CODEINE [Suspect]
     Indication: HEADACHE
  4. IBUPROFEN [Suspect]
     Indication: HEADACHE
  5. TRAMADOL HCL [Suspect]
     Indication: HEADACHE

REACTIONS (3)
  - COMA [None]
  - INTRACRANIAL ANEURYSM [None]
  - SUBARACHNOID HAEMORRHAGE [None]
